FAERS Safety Report 7210262-3 (Version None)
Quarter: 2010Q4

REPORT INFORMATION
  Report Type: 
  Country: None (occurrence: None)
  Receive Date: 20101223
  Receipt Date: 20101215
  Transmission Date: 20110411
  Serious: Yes (Death)
  Sender: FDA-Public Use
  Company Number: DSA_44527_2010

PATIENT
  Age: 44 Year
  Sex: Male

DRUGS (1)
  1. XENAZINE [Suspect]
     Indication: PRODUCT USED FOR UNKNOWN INDICATION
     Dosage: 25 MG BID ORAL
     Route: 048
     Dates: start: 20090318, end: 20101101

REACTIONS (1)
  - DEATH [None]
